FAERS Safety Report 20372723 (Version 4)
Quarter: 2023Q2

REPORT INFORMATION
  Report Type: Report from Study
  Country: TH (occurrence: TH)
  Receive Date: 20220125
  Receipt Date: 20230623
  Transmission Date: 20230722
  Serious: Yes (Hospitalization, Other)
  Sender: FDA-Public Use
  Company Number: TH-JNJFOC-20211208146

PATIENT
  Age: 61 Year
  Sex: Male

DRUGS (2)
  1. BORTEZOMIB [Suspect]
     Active Substance: BORTEZOMIB
     Indication: Plasma cell myeloma
     Dosage: 3.5 MILLIGRAM, 1/WEEK
     Route: 058
     Dates: start: 20210513
  2. DARATUMUMAB [Suspect]
     Active Substance: DARATUMUMAB
     Indication: Plasma cell myeloma
     Dosage: 1200 MILLIGRAM, MONTHLY
     Route: 041
     Dates: start: 20210513

REACTIONS (2)
  - Pneumonia fungal [Unknown]
  - Bone marrow transplant [Unknown]
